FAERS Safety Report 5772774-9 (Version None)
Quarter: 2008Q2

REPORT INFORMATION
  Report Type: 
  Country: None (occurrence: None)
  Receive Date: 20080601
  Receipt Date: 20080317
  Transmission Date: 20081010
  Serious: No
  Sender: FDA-Public Use
  Company Number: US200803004142

PATIENT
  Age: 65 Year
  Sex: Female
  Weight: 67.6 kg

DRUGS (4)
  1. BYETTA [Suspect]
     Indication: TYPE 2 DIABETES MELLITUS
     Dosage: 10 UG, 2/D, SUBCUTANEOUS
     Route: 058
     Dates: start: 20050101
  2. METFORMIN HCL [Concomitant]
  3. GLIMEPIRIDE [Concomitant]
  4. TIMOLOL MALEATE [Concomitant]

REACTIONS (3)
  - CATARACT [None]
  - GLAUCOMA [None]
  - WEIGHT DECREASED [None]
